FAERS Safety Report 7724183-0 (Version None)
Quarter: 2011Q3

REPORT INFORMATION
  Report Type: 
  Country: None (occurrence: None)
  Receive Date: 20110901
  Receipt Date: 20110824
  Transmission Date: 20111222
  Serious: Yes (Life-Threatening)
  Sender: FDA-Public Use
  Company Number: RU-MPIJNJ-2011-03872

PATIENT

DRUGS (5)
  1. THIOCTIC ACID [Concomitant]
     Indication: POLYNEUROPATHY
     Dosage: 300 MG, UNK
     Dates: start: 20070315
  2. ALLOPURINOL [Concomitant]
     Indication: PROPHYLAXIS
     Dosage: 300 MG, UNK
     Dates: start: 20110314
  3. GABAPENTIN [Concomitant]
     Indication: POLYNEUROPATHY
     Dosage: 300 MG, UNK
     Dates: start: 20070320
  4. VELCADE [Suspect]
     Indication: MULTIPLE MYELOMA
     Dosage: 1 MG, UNK
     Route: 065
     Dates: start: 20061222, end: 20070324
  5. EPOGEN [Concomitant]
     Indication: ANAEMIA
     Dosage: UNK
     Route: 058
     Dates: start: 20061221

REACTIONS (1)
  - EPILEPSY [None]
